FAERS Safety Report 8797201 (Version 1)
Quarter: 2012Q4

REPORT INFORMATION
  Report Type: 
  Country: TR (occurrence: TR)
  Receive Date: 20120919
  Receipt Date: 20120919
  Transmission Date: 20130627
  Serious: Yes (Other)
  Sender: FDA-Public Use
  Company Number: TR-WATSON-2012-16035

PATIENT
  Age: 31 Month
  Sex: Female

DRUGS (3)
  1. FLUOXETINE HYDROCHLORIDE (UNKNOWN) [Suspect]
     Indication: OBSESSIVE-COMPULSIVE DISORDER
     Dosage: 5 mg, daily
  2. FLUOXETINE HYDROCHLORIDE (UNKNOWN) [Suspect]
     Dosage: 20 mg, daily
     Route: 065
  3. FLUOXETINE HYDROCHLORIDE (UNKNOWN) [Suspect]
     Dosage: 15 mg, daily

REACTIONS (4)
  - Abnormal behaviour [Recovered/Resolved]
  - Disease recurrence [None]
  - Obsessive-compulsive disorder [None]
  - Sleep disorder [None]
